FAERS Safety Report 12167715 (Version 1)
Quarter: 2016Q1

REPORT INFORMATION
  Report Type: Spontaneous
  Country: US (occurrence: None)
  Receive Date: 20160309
  Receipt Date: 20160309
  Transmission Date: 20160526
  Serious: Yes (Disabling)
  Sender: FDA-Public Use
  Company Number: None

PATIENT
  Age: 46 Year
  Sex: Female
  Weight: 58.97 kg

DRUGS (5)
  1. CEFDINIR 300 MG BLUEPOINT [Suspect]
     Active Substance: CEFDINIR
     Indication: PNEUMONIA
     Dosage: 1 CAP TWICE A DAY, TAKEN BY MOUTH
     Route: 048
     Dates: start: 20151125, end: 20151205
  2. TOPAMAX [Concomitant]
     Active Substance: TOPIRAMATE
  3. SINGULAIR [Concomitant]
     Active Substance: MONTELUKAST SODIUM
  4. CEFDINIR 300 MG BLUEPOINT [Suspect]
     Active Substance: CEFDINIR
     Indication: BRONCHITIS
     Dosage: 1 CAP TWICE A DAY, TAKEN BY MOUTH
     Route: 048
     Dates: start: 20151125, end: 20151205
  5. RESVERATROL [Concomitant]
     Active Substance: RESVERATROL

REACTIONS (7)
  - Decreased appetite [None]
  - Condition aggravated [None]
  - Pneumonia [None]
  - Insomnia [None]
  - Dyspepsia [None]
  - Migraine [None]
  - Bronchitis [None]

NARRATIVE: CASE EVENT DATE: 20151125
